FAERS Safety Report 7887749-3 (Version None)
Quarter: 2011Q4

REPORT INFORMATION
  Report Type: 
  Country: None (occurrence: None)
  Receive Date: 20111101
  Receipt Date: 20111025
  Transmission Date: 20120403
  Serious: Yes (Death)
  Sender: FDA-Public Use
  Company Number: DKLU1074226

PATIENT
  Age: 19 Year
  Sex: Female

DRUGS (7)
  1. CLONAZEPAM [Concomitant]
  2. LEXAPRO [Concomitant]
  3. PRENATAL VITAMIN (PRENATAL VITAMINS) [Concomitant]
  4. SABRIL [Suspect]
     Indication: EPILEPSY
     Dosage: 1500 MG MILLIGRAM(S), 3 IN 1 D, ORAL
     Route: 048
     Dates: start: 20110615
  5. FOLIC ACID [Concomitant]
  6. PULMICORT [Concomitant]
  7. ALBUTEROL [Concomitant]

REACTIONS (1)
  - DEATH [None]
